FAERS Safety Report 6917040-0 (Version None)
Quarter: 2010Q3

REPORT INFORMATION
  Report Type: 
  Country: None (occurrence: None)
  Receive Date: 20100810
  Receipt Date: 20100804
  Transmission Date: 20110219
  Serious: Yes (Hospitalization)
  Sender: FDA-Public Use
  Company Number: A0874011A

PATIENT
  Age: 53 Year
  Sex: Male

DRUGS (9)
  1. ZANTAC [Suspect]
     Dosage: 300MG AT NIGHT
     Route: 048
     Dates: start: 20090301
  2. ALBUTEROL [Concomitant]
  3. SPIRIVA [Concomitant]
  4. VALIUM [Concomitant]
  5. PERCOCET [Concomitant]
  6. ATARAX [Concomitant]
  7. ASPIRIN [Concomitant]
  8. PLAVIX [Concomitant]
  9. LOVASTATIN [Concomitant]

REACTIONS (4)
  - CAROTID ARTERY OCCLUSION [None]
  - CAROTID ENDARTERECTOMY [None]
  - HYPOAESTHESIA [None]
  - TRANSIENT ISCHAEMIC ATTACK [None]
